FAERS Safety Report 12851234 (Version 1)
Quarter: 2016Q4

REPORT INFORMATION
  Report Type: Spontaneous
  Country: US (occurrence: US)
  Receive Date: 20161014
  Receipt Date: 20161014
  Transmission Date: 20170207
  Serious: Yes (Hospitalization)
  Sender: FDA-Public Use
  Company Number: None

PATIENT
  Age: 16 Year
  Sex: Female
  Weight: 93.8 kg

DRUGS (3)
  1. DAUNORUBICIN [Suspect]
     Active Substance: DAUNORUBICIN
     Dates: end: 20160922
  2. PREDNISONE. [Suspect]
     Active Substance: PREDNISONE
     Dates: end: 20160928
  3. VNCRSITINE SULFATE [Suspect]
     Active Substance: VINCRISTINE SULFATE
     Dates: end: 20160922

REACTIONS (14)
  - Fatigue [None]
  - Headache [None]
  - Activated partial thromboplastin time prolonged [None]
  - Hypotension [None]
  - Ocular icterus [None]
  - Blood bilirubin increased [None]
  - White blood cell count decreased [None]
  - Abdominal pain [None]
  - Platelet count decreased [None]
  - Pain [None]
  - Bilirubin conjugated increased [None]
  - Coronavirus test positive [None]
  - Hypophagia [None]
  - Alanine aminotransferase increased [None]

NARRATIVE: CASE EVENT DATE: 20160927
